FAERS Safety Report 23509161 (Version 1)
Quarter: 2024Q1

REPORT INFORMATION
  Report Type: Report from Study
  Country: US (occurrence: US)
  Receive Date: 20240210
  Receipt Date: 20240210
  Transmission Date: 20240410
  Serious: Yes (Hospitalization)
  Sender: FDA-Public Use
  Company Number: US-ABBVIE-5628926

PATIENT
  Age: 62 Year
  Sex: Male

DRUGS (1)
  1. IMBRUVICA [Suspect]
     Active Substance: IBRUTINIB
     Indication: Mantle cell lymphoma
     Dosage: 140MG CAPSULES (560MG ONCE DAILY ON DAYS 1-19 OF CYCLES 1, 3, 5 (21 DAY CYCLES)
     Route: 048
     Dates: start: 20240118

REACTIONS (1)
  - Infusion [Unknown]

NARRATIVE: CASE EVENT DATE: 20240101
